FAERS Safety Report 6769269-2 (Version None)
Quarter: 2010Q2

REPORT INFORMATION
  Report Type: 
  Country: None (occurrence: None)
  Receive Date: 20100615
  Receipt Date: 20100607
  Transmission Date: 20101027
  Serious: Yes (Other)
  Sender: FDA-Public Use
  Company Number: BR-JNJFOC-20100603757

PATIENT
  Sex: Male
  Weight: 6.34 kg

DRUGS (3)
  1. MOTILIUM [Suspect]
     Indication: GASTROOESOPHAGEAL REFLUX DISEASE
     Route: 048
  2. TYLENOL BEBE 100 MG/ML [Suspect]
     Route: 048
  3. TYLENOL BEBE 100 MG/ML [Suspect]
     Indication: PROPHYLAXIS
     Route: 048

REACTIONS (5)
  - ABDOMINAL DISTENSION [None]
  - DYSPNOEA [None]
  - ERYTHEMA OF EYELID [None]
  - NAUSEA [None]
  - SWOLLEN TONGUE [None]
